FAERS Safety Report 7196445-X (Version None)
Quarter: 2010Q4

REPORT INFORMATION
  Report Type: 
  Country: None (occurrence: None)
  Receive Date: 20101223
  Receipt Date: 20101025
  Transmission Date: 20110411
  Serious: Yes (Death)
  Sender: FDA-Public Use
  Company Number: US-AMGEN-USASP2010002459

PATIENT

DRUGS (1)
  1. ENBREL [Suspect]

REACTIONS (2)
  - SEPSIS [None]
  - URETERAL STENT REMOVAL [None]
